FAERS Safety Report 24255119 (Version 1)
Quarter: 2024Q3

REPORT INFORMATION
  Report Type: Spontaneous
  Country: KR (occurrence: KR)
  Receive Date: 20240827
  Receipt Date: 20240827
  Transmission Date: 20241017
  Serious: Yes (Other)
  Sender: GILEAD
  Company Number: KR-GILEAD-2024-0685035

PATIENT
  Sex: Male

DRUGS (3)
  1. VIREAD [Suspect]
     Active Substance: TENOFOVIR DISOPROXIL FUMARATE
     Indication: Chronic hepatitis B
     Dosage: 1 DOSAGE FORM, QD
     Route: 065
  2. ARONAMIN [Concomitant]
  3. URSODIOL [Concomitant]
     Active Substance: URSODIOL

REACTIONS (2)
  - Cerebral haemorrhage [Unknown]
  - Dysphagia [Unknown]

NARRATIVE: CASE EVENT DATE: 20240601
